FAERS Safety Report 21268625 (Version 1)
Quarter: 2022Q3

REPORT INFORMATION
  Report Type: Spontaneous
  Country: US (occurrence: US)
  Receive Date: 20220830
  Receipt Date: 20220830
  Transmission Date: 20221027
  Serious: Yes (Other)
  Sender: FDA-Public Use
  Company Number: US-SUN PHARMACEUTICAL INDUSTRIES LTD-2022R1-352642

PATIENT
  Age: 50 Year
  Sex: Female

DRUGS (1)
  1. ZOLPIDEM [Suspect]
     Active Substance: ZOLPIDEM TARTRATE
     Indication: Insomnia
     Dosage: MULTIPLE TIMES AT NIGHT
     Route: 065

REACTIONS (3)
  - Somnolence [Unknown]
  - Drug dependence [Unknown]
  - Affective disorder [Unknown]
